FAERS Safety Report 12210933 (Version 1)
Quarter: 2016Q1

REPORT INFORMATION
  Report Type: Spontaneous
  Country: AU (occurrence: AU)
  Receive Date: 20160325
  Receipt Date: 20160325
  Transmission Date: 20160526
  Serious: Yes (Death, Hospitalization)
  Sender: FDA-Public Use
  Company Number: PHHO2015AU018655

PATIENT
  Age: 55 Year
  Sex: Female
  Weight: 63 kg

DRUGS (4)
  1. MYCOPHENOLATE MOFETIL. [Concomitant]
     Active Substance: MYCOPHENOLATE MOFETIL
     Indication: RENAL TRANSPLANT
     Dosage: 1 G, BID
     Route: 048
     Dates: start: 2015
  2. ECULIZUMAB [Concomitant]
     Active Substance: ECULIZUMAB
     Indication: RENAL TRANSPLANT
     Dosage: 1200 MG PER WKCT
     Route: 042
     Dates: start: 2015
  3. CERTICAN [Suspect]
     Active Substance: EVEROLIMUS
     Indication: RENAL TRANSPLANT
     Dosage: 6 MG, QD
     Route: 048
     Dates: start: 20150529, end: 20150608
  4. PREDNISOLONE. [Concomitant]
     Active Substance: PREDNISOLONE
     Indication: RENAL TRANSPLANT
     Dosage: DAILY
     Route: 048
     Dates: start: 2015

REACTIONS (2)
  - Chronic obstructive pulmonary disease [Fatal]
  - Respiratory distress [Fatal]

NARRATIVE: CASE EVENT DATE: 20150921
